FAERS Safety Report 20728348 (Version 1)
Quarter: 2022Q2

REPORT INFORMATION
  Report Type: Spontaneous
  Country: US (occurrence: US)
  Receive Date: 20220420
  Receipt Date: 20220420
  Transmission Date: 20220721
  Serious: Yes (Hospitalization)
  Sender: FDA-Public Use
  Company Number: US-MTPC-MTDA2022-0009345

PATIENT

DRUGS (2)
  1. RADICAVA [Suspect]
     Active Substance: EDARAVONE
     Indication: Amyotrophic lateral sclerosis
     Dosage: UNK
     Route: 065
  2. RILUZOLE [Suspect]
     Active Substance: RILUZOLE
     Indication: Amyotrophic lateral sclerosis
     Dosage: UNK
     Route: 065

REACTIONS (8)
  - Lower limb fracture [Unknown]
  - Balance disorder [Unknown]
  - Depressed mood [Unknown]
  - Fall [Unknown]
  - Muscular weakness [Unknown]
  - Dysphonia [Unknown]
  - Nasal congestion [Unknown]
  - Hypersensitivity [Unknown]
